FAERS Safety Report 8361227-X (Version None)
Quarter: 2012Q2

REPORT INFORMATION
  Report Type: 
  Country: None (occurrence: None)
  Receive Date: 20120515
  Receipt Date: 20110726
  Transmission Date: 20120825
  Serious: No
  Sender: FDA-Public Use
  Company Number: US-ALEXION-A201101138

PATIENT
  Sex: Male

DRUGS (13)
  1. BUPROPION HCL [Concomitant]
     Dosage: 100 MG, QD
     Route: 048
  2. FUROSEMIDE [Concomitant]
     Dosage: 20 MG, QD
     Route: 048
  3. K-TAB [Concomitant]
     Dosage: 10 MEQ, QD
     Route: 048
  4. FOLIC ACID [Concomitant]
     Dosage: UNK, 1 TABLET QD
     Route: 048
  5. PRILOCAINE HYDROCHLORIDE [Concomitant]
     Dosage: UNK, 2.5% APPLY AS DIRECTED
     Route: 061
  6. LACTINEX [Concomitant]
     Dosage: UNK, 1 PACKET TID
     Route: 048
  7. RED BLOOD CELLS [Concomitant]
     Dosage: UNK, 3WEEKS/MONTH
  8. ONDANSETRON [Concomitant]
     Dosage: 4 MG, Q8H PRN
     Route: 048
  9. MUPIROCIN [Concomitant]
     Dosage: 2 %, TID
  10. SOLIRIS [Suspect]
     Indication: PAROXYSMAL NOCTURNAL HAEMOGLOBINURIA
     Dosage: 1200 MG, QW
     Route: 042
     Dates: start: 20090101
  11. EXJADE [Concomitant]
     Dosage: 2000 MG, QD
     Route: 048
  12. TRIAMCINOLONE ACETONIDE [Concomitant]
     Dosage: 0.1 %, BID TO AFFECTED AREA
     Route: 061
  13. SANTYL [Concomitant]
     Dosage: UNK, 250 UNIT
     Route: 061

REACTIONS (9)
  - PHOTOPHOBIA [None]
  - ALANINE AMINOTRANSFERASE ABNORMAL [None]
  - BLOOD BILIRUBIN ABNORMAL [None]
  - ANAEMIA [None]
  - ABDOMINAL PAIN UPPER [None]
  - IRON OVERLOAD [None]
  - ASPARTATE AMINOTRANSFERASE ABNORMAL [None]
  - BLOOD ALKALINE PHOSPHATASE ABNORMAL [None]
  - DYSPNOEA EXERTIONAL [None]
